FAERS Safety Report 12867767 (Version 1)
Quarter: 2016Q4

REPORT INFORMATION
  Report Type: Spontaneous
  Country: JP (occurrence: JP)
  Receive Date: 20161020
  Receipt Date: 20161020
  Transmission Date: 20170207
  Serious: Yes (Death, Other)
  Sender: FDA-Public Use
  Company Number: JP-CELGENEUS-JPN-2016104861

PATIENT

DRUGS (2)
  1. POMALYST [Suspect]
     Active Substance: POMALIDOMIDE
     Indication: PLASMA CELL MYELOMA
     Dosage: 4 MILLIGRAM
     Route: 048
  2. DEXAMETHASONE. [Suspect]
     Active Substance: DEXAMETHASONE
     Indication: PLASMA CELL MYELOMA
     Dosage: 40MG(20MG IG AGED } 75YRS)
     Route: 065

REACTIONS (6)
  - Plasma cell myeloma [Unknown]
  - Thrombocytopenia [Unknown]
  - Death [Fatal]
  - Neuropathy peripheral [Unknown]
  - Anaemia [Unknown]
  - Neutropenia [Unknown]
